FAERS Safety Report 5991238-0 (Version None)
Quarter: 2008Q4

REPORT INFORMATION
  Report Type: 
  Country: None (occurrence: None)
  Receive Date: 20081211
  Receipt Date: 20081211
  Transmission Date: 20090506
  Serious: Yes (Death, Hospitalization)
  Sender: FDA-Public Use
  Company Number: US-JNJFOC-20061100525

PATIENT
  Sex: Female
  Weight: 156.7 kg

DRUGS (6)
  1. ORTHO EVRA [Suspect]
     Indication: DRUG USE FOR UNKNOWN INDICATION
  2. ACIPHEX [Concomitant]
  3. DIOVAN [Concomitant]
  4. VALPROIC ACID [Concomitant]
  5. LITHIUM [Concomitant]
  6. LITHIUM [Concomitant]

REACTIONS (2)
  - DEEP VEIN THROMBOSIS [None]
  - PULMONARY EMBOLISM [None]
